FAERS Safety Report 16737880 (Version 2)
Quarter: 2021Q1

REPORT INFORMATION
  Report Type: Spontaneous
  Country: US (occurrence: US)
  Receive Date: 20190824
  Receipt Date: 20210224
  Transmission Date: 20210419
  Serious: Yes (Other)
  Sender: FDA-Public Use
  Company Number: US-BRISTOL-MYERS SQUIBB COMPANY-BMS-2019-081390

PATIENT
  Age: 49 Year
  Sex: Male

DRUGS (1)
  1. IPILIMUMAB [Suspect]
     Active Substance: IPILIMUMAB
     Indication: CHRONIC MYELOID LEUKAEMIA
     Dosage: 10 MILLIGRAM/KILOGRAM, Q3WK
     Route: 065

REACTIONS (8)
  - Immune-mediated hepatitis [Unknown]
  - Autoimmune thyroiditis [Unknown]
  - Immune-mediated dermatitis [Unknown]
  - Cystoid macular oedema [Recovered/Resolved]
  - Retinal vasculitis [Unknown]
  - Immune-mediated enterocolitis [Unknown]
  - Intentional product use issue [Unknown]
  - Iridocyclitis [Unknown]
